FAERS Safety Report 7451330-0 (Version None)
Quarter: 2011Q2

REPORT INFORMATION
  Report Type: 
  Country: None (occurrence: None)
  Receive Date: 20110502
  Receipt Date: 20110323
  Transmission Date: 20111010
  Serious: Yes (Other)
  Sender: FDA-Public Use
  Company Number: US-BAYER-201018737NA

PATIENT
  Sex: Male
  Weight: 74.3 kg

DRUGS (33)
  1. PANTOPRAZOLE [Concomitant]
  2. VYTORIN [Concomitant]
  3. SLOW-K [Concomitant]
  4. ANALGESICS [Concomitant]
  5. AMLODIPINE BESYLATE [Concomitant]
  6. DOXYCYCLINE AL [Concomitant]
  7. PREDNISONE [Concomitant]
  8. LASIX [Concomitant]
  9. OMNISCAN [Suspect]
     Indication: IMAGING PROCEDURE
  10. PROHANCE [Suspect]
     Indication: IMAGING PROCEDURE
  11. FEXOFENADINE HCL [Concomitant]
  12. JANUVIA [Concomitant]
  13. VENTOLIN HFA [Concomitant]
  14. SINGULAIR [Concomitant]
  15. PROTONIX [Concomitant]
  16. SIMVASTATIN [Concomitant]
  17. ISOSORBIDE DINITRATE, COMBINATIONS [Concomitant]
  18. ATROVENT [Concomitant]
  19. NASONEX [Concomitant]
  20. NITROGLYCERIN [Concomitant]
  21. COREG [Concomitant]
  22. MULTIHANCE [Suspect]
     Indication: IMAGING PROCEDURE
  23. MULTI-VITAMINS [Concomitant]
  24. CLONIDINE [Concomitant]
  25. MAGNEVIST [Suspect]
     Indication: IMAGING PROCEDURE
  26. OPTIMARK [Suspect]
     Indication: IMAGING PROCEDURE
  27. GADOLINIUM IN UNSPECIFIED DRUG [Suspect]
     Indication: VASCULAR GRAFT
     Dosage: UNK UNK, ONCE
     Dates: start: 20100510, end: 20100510
  28. ADVAIR DISKUS 100/50 [Concomitant]
  29. METOPROLOL TARTRATE [Concomitant]
  30. TRAMADOL HCL CF [Concomitant]
  31. GLIPIZIDE [Concomitant]
  32. RENVELA [Concomitant]
  33. HYFLEX-DS [Concomitant]

REACTIONS (8)
  - DEFORMITY [None]
  - NEPHROGENIC SYSTEMIC FIBROSIS [None]
  - SCAR [None]
  - MOBILITY DECREASED [None]
  - PAIN [None]
  - GENERAL PHYSICAL HEALTH DETERIORATION [None]
  - FIBROSIS [None]
  - OEDEMA PERIPHERAL [None]
